FAERS Safety Report 5068553-0 (Version None)
Quarter: 2006Q3

REPORT INFORMATION
  Report Type: 
  Country: None (occurrence: None)
  Receive Date: 20060802
  Receipt Date: 20051123
  Transmission Date: 20061208
  Serious: No
  Sender: FDA-Public Use
  Company Number: US-BRISTOL-MYERS SQUIBB COMPANY-13193115

PATIENT
  Age: 76 Year
  Sex: Female
  Weight: 58 kg

DRUGS (6)
  1. COUMADIN [Suspect]
     Indication: ATRIAL FIBRILLATION
     Dosage: PHYSICIAN RECOMMENDED TO WITHHOLD WARFARIN SODIUM ON 23-NOV-2005 FOR 1 DAY AND RESUME AT 4 MG DAILY
  2. LANOXIN [Concomitant]
  3. ACTONEL [Concomitant]
  4. PLENDIL [Concomitant]
  5. XALATAN [Concomitant]
     Route: 047
  6. HYDROCHLOROTHIAZIDE [Concomitant]

REACTIONS (1)
  - INTERNATIONAL NORMALISED RATIO ABNORMAL [None]
